FAERS Safety Report 19841894 (Version 15)
Quarter: 2021Q4

REPORT INFORMATION
  Report Type: Spontaneous
  Country: US (occurrence: US)
  Receive Date: 20210916
  Receipt Date: 20211209
  Transmission Date: 20220304
  Serious: No
  Sender: FDA-Public Use
  Company Number: US-UNITED THERAPEUTICS-UNT-2021-017961

PATIENT
  Sex: Female
  Weight: 53.968 kg

DRUGS (7)
  1. REMODULIN [Suspect]
     Active Substance: TREPROSTINIL
     Indication: Pulmonary arterial hypertension
     Dosage: UNK, CONTINUING
     Route: 058
     Dates: start: 20210908
  2. REMODULIN [Suspect]
     Active Substance: TREPROSTINIL
     Dosage: 0.005 ?G/KG, CONTINUING
     Route: 058
     Dates: start: 202109
  3. REMODULIN [Suspect]
     Active Substance: TREPROSTINIL
     Dosage: 0.0075 ?G/KG, CONTINUING
     Route: 058
     Dates: start: 2021
  4. REMODULIN [Suspect]
     Active Substance: TREPROSTINIL
     Dosage: 0.0085 ?G/KG, CONTINUING
     Route: 058
     Dates: start: 2021
  5. REMODULIN [Suspect]
     Active Substance: TREPROSTINIL
     Dosage: UNK, CONTINUING (AT AN INFUSION RATE OF 0.034 ML/HOUR)
     Route: 058
     Dates: start: 2021
  6. REMODULIN [Suspect]
     Active Substance: TREPROSTINIL
     Dosage: 0.013 ?G/KG, CONTINUING
     Route: 058
     Dates: start: 2021
  7. CHLORPHENIRAMINE [Suspect]
     Active Substance: CHLORPHENIRAMINE
     Indication: Product used for unknown indication
     Dosage: UNK
     Route: 065

REACTIONS (36)
  - Infusion site pain [Not Recovered/Not Resolved]
  - Infusion site irritation [Unknown]
  - Infusion site erythema [Not Recovered/Not Resolved]
  - Dizziness [Unknown]
  - Pain in jaw [Not Recovered/Not Resolved]
  - Myalgia [Unknown]
  - Decreased appetite [Unknown]
  - Diarrhoea [Not Recovered/Not Resolved]
  - Arthralgia [Unknown]
  - Malaise [Unknown]
  - Cough [Not Recovered/Not Resolved]
  - Mobility decreased [Unknown]
  - Mastication disorder [Unknown]
  - Infusion site rash [Unknown]
  - Dermatitis contact [Unknown]
  - Nocturia [Unknown]
  - Weight decreased [Unknown]
  - Oedema [Unknown]
  - Fatigue [Unknown]
  - Upper-airway cough syndrome [Unknown]
  - Poor quality sleep [Unknown]
  - Initial insomnia [Unknown]
  - Nocturnal dyspnoea [Unknown]
  - Erythema [Unknown]
  - Fall [Recovered/Resolved with Sequelae]
  - Ligament sprain [Unknown]
  - Contusion [Unknown]
  - Headache [Unknown]
  - Dyspnoea [Not Recovered/Not Resolved]
  - Infusion site induration [Unknown]
  - Oxygen consumption increased [Unknown]
  - Vomiting [Unknown]
  - Infusion site swelling [Unknown]
  - Muscle spasms [Unknown]
  - Chest discomfort [Unknown]
  - Feeling abnormal [Unknown]

NARRATIVE: CASE EVENT DATE: 20210101
